FAERS Safety Report 24568291 (Version 2)
Quarter: 2024Q4

REPORT INFORMATION
  Report Type: Spontaneous
  Country: US (occurrence: US)
  Receive Date: 20241031
  Receipt Date: 20241125
  Transmission Date: 20250114
  Serious: Yes (Hospitalization)
  Sender: MERCK
  Company Number: US-009507513-2410USA012480

PATIENT
  Sex: Female
  Weight: 57.37 kg

DRUGS (2)
  1. KEYTRUDA [Suspect]
     Active Substance: PEMBROLIZUMAB
     Indication: Endometrial adenocarcinoma
     Dosage: 200 MILLIGRAM, EVERY 3 WEEKS (Q3W), ROA: INFUSION, 5 TOTAL CYCLES
     Dates: start: 20240226, end: 2024
  2. KEYTRUDA [Suspect]
     Active Substance: PEMBROLIZUMAB
     Dosage: 400 MILLIGRAM, EVERY 6 WEEKS (EVERY 42 DAYS), ROA: INFUSION
     Dates: start: 20240619

REACTIONS (8)
  - Herpes zoster [Recovering/Resolving]
  - Lichenoid keratosis [Recovering/Resolving]
  - Erythema [Recovering/Resolving]
  - Skin swelling [Recovering/Resolving]
  - Pain of skin [Recovering/Resolving]
  - Scab [Recovering/Resolving]
  - Skin lesion [Recovering/Resolving]
  - Laboratory test abnormal [Unknown]

NARRATIVE: CASE EVENT DATE: 20240101
